FAERS Safety Report 8765461 (Version 3)
Quarter: 2014Q2

REPORT INFORMATION
  Report Type: Spontaneous
  Country: US (occurrence: US)
  Receive Date: 20120903
  Receipt Date: 20131017
  Transmission Date: 20141212
  Serious: Yes (Hospitalization, Other)
  Sender: FDA-Public Use
  Company Number: US-PFIZER INC-2012212670

PATIENT
  Age: 51 Year
  Sex: Male
  Weight: 106 kg

DRUGS (4)
  1. DILANTIN [Suspect]
     Indication: CONVULSION
     Dosage: 100 MG, UNK
     Route: 048
     Dates: start: 199804, end: 201205
  2. DILANTIN [Suspect]
     Dosage: 300 MG, 1X/DAY
     Route: 048
     Dates: start: 2012
  3. VIMPAT [Concomitant]
     Indication: CONVULSION
     Dosage: UNK
  4. PHENOBARBITAL [Concomitant]
     Indication: CONVULSION
     Dosage: UNK

REACTIONS (7)
  - Convulsion [Recovering/Resolving]
  - Coma [Unknown]
  - Hemiplegia [Recovering/Resolving]
  - Dysuria [Unknown]
  - Anticonvulsant drug level abnormal [Unknown]
  - Hypoaesthesia [Recovering/Resolving]
  - Drug level fluctuating [Unknown]
